FAERS Safety Report 12627686 (Version 1)
Quarter: 2016Q3

REPORT INFORMATION
  Report Type: Spontaneous
  Country: DE (occurrence: DE)
  Receive Date: 20160805
  Receipt Date: 20160805
  Transmission Date: 20161109
  Serious: Yes (Other)
  Sender: FDA-Public Use
  Company Number: DE-GILEAD-2016-0225368

PATIENT
  Age: 35 Year
  Sex: Male

DRUGS (4)
  1. PROTEIN [Suspect]
     Active Substance: PROTEIN
     Indication: SUPPLEMENTATION THERAPY
     Route: 065
  2. CREATINE [Suspect]
     Active Substance: CREATINE
     Indication: SUPPLEMENTATION THERAPY
     Route: 065
  3. GLUCOSAMINE SULPHATE [Suspect]
     Active Substance: GLUCOSAMINE
     Indication: SUPPLEMENTATION THERAPY
     Route: 065
  4. GENVOYA [Suspect]
     Active Substance: COBICISTAT\ELVITEGRAVIR\EMTRICITABINE\TENOFOVIR ALAFENAMIDE FUMARATE
     Indication: HIV INFECTION
     Route: 065

REACTIONS (3)
  - Viraemia [Unknown]
  - Drug ineffective [Unknown]
  - Drug interaction [Unknown]
